FAERS Safety Report 9160533 (Version 2)
Quarter: 2013Q3

REPORT INFORMATION
  Report Type: Spontaneous
  Country: KR (occurrence: None)
  Receive Date: 20130220
  Receipt Date: 20130815
  Transmission Date: 20140515
  Serious: Yes (Hospitalization, Other)
  Sender: FDA-Public Use
  Company Number: JP-2013-10342

PATIENT
  Age: 47 Year
  Sex: Male
  Weight: 71 kg

DRUGS (7)
  1. OPC-13013 [Suspect]
     Indication: CORONARY ARTERY DISEASE
     Route: 048
     Dates: start: 20101023, end: 20110116
  2. OPC-13013 [Suspect]
     Indication: CORONARY ARTERIAL STENT INSERTION
     Route: 048
     Dates: start: 20101023, end: 20110116
  3. ASPIRIN [Suspect]
     Indication: CORONARY ARTERY DISEASE
     Route: 048
     Dates: start: 20101018
  4. ASPIRIN [Suspect]
     Indication: CORONARY ARTERIAL STENT INSERTION
     Route: 048
     Dates: start: 20101018
  5. CLOPIDOGREL [Suspect]
     Indication: CORONARY ARTERY DISEASE
     Route: 048
     Dates: start: 20101018
  6. LIPITOR (ATORVASTATIN CALCIUM) [Concomitant]
  7. VASTINAN MR (TRIMETAZIDINE HYDROCHLORIDE) [Concomitant]

REACTIONS (2)
  - Meniscus injury [None]
  - Cholecystitis [None]
